FAERS Safety Report 6109216-X (Version None)
Quarter: 2009Q1

REPORT INFORMATION
  Report Type: 
  Country: None (occurrence: None)
  Receive Date: 20090310
  Receipt Date: 20090304
  Transmission Date: 20090719
  Serious: Yes (Hospitalization)
  Sender: FDA-Public Use
  Company Number: PHHY2009CN07902

PATIENT
  Age: 30 Year
  Sex: Male

DRUGS (1)
  1. TEGRETOL [Suspect]
     Indication: EPILEPSY
     Dosage: UNK
     Route: 048
     Dates: start: 20080315

REACTIONS (11)
  - BLISTER [None]
  - CONJUNCTIVAL HYPERAEMIA [None]
  - GENITAL HERPES [None]
  - HEPATOMEGALY [None]
  - MOUTH ULCERATION [None]
  - ORAL HERPES [None]
  - PRURITUS [None]
  - PYREXIA [None]
  - RASH GENERALISED [None]
  - STEVENS-JOHNSON SYNDROME [None]
  - SWELLING FACE [None]
